FAERS Safety Report 25732562 (Version 1)
Quarter: 2025Q3

REPORT INFORMATION
  Report Type: Spontaneous
  Country: US (occurrence: US)
  Receive Date: 20250827
  Receipt Date: 20250827
  Transmission Date: 20251021
  Serious: No
  Sender: INCYTE
  Company Number: US-EVENT-003988

PATIENT
  Age: 67 Year

DRUGS (6)
  1. JAKAFI [Suspect]
     Active Substance: RUXOLITINIB
     Indication: Muscular weakness
     Dosage: 15 MILLIGRAM, Q12H
     Route: 065
  2. JAKAFI [Suspect]
     Active Substance: RUXOLITINIB
     Indication: Myocarditis
  3. JAKAFI [Suspect]
     Active Substance: RUXOLITINIB
     Indication: Myositis
  4. ABATACEPT [Concomitant]
     Active Substance: ABATACEPT
     Indication: Muscular weakness
     Route: 065
  5. ABATACEPT [Concomitant]
     Active Substance: ABATACEPT
     Indication: Myocarditis
  6. ABATACEPT [Concomitant]
     Active Substance: ABATACEPT
     Indication: Myositis

REACTIONS (1)
  - Off label use [Unknown]
